FAERS Safety Report 4925574-3 (Version None)
Quarter: 2006Q1

REPORT INFORMATION
  Report Type: 
  Country: None (occurrence: None)
  Receive Date: 20060228
  Receipt Date: 20050103
  Transmission Date: 20060701
  Serious: Yes (Life-Threatening, Hospitalization)
  Sender: FDA-Public Use
  Company Number: US-GLAXOSMITHKLINE-A0539091A

PATIENT
  Age: 17 Year
  Sex: Female
  Weight: 105 kg

DRUGS (2)
  1. LAMICTAL [Suspect]
     Indication: EPILEPSY
     Route: 048
     Dates: start: 20041108
  2. TEGRETOL [Concomitant]

REACTIONS (7)
  - BLISTER [None]
  - INTUBATION [None]
  - MUCOUS MEMBRANE DISORDER [None]
  - ORAL MUCOSAL BLISTERING [None]
  - SKIN EXFOLIATION [None]
  - STEVENS-JOHNSON SYNDROME [None]
  - VAGINAL MUCOSAL BLISTERING [None]
